FAERS Safety Report 6145394-4 (Version None)
Quarter: 2009Q2

REPORT INFORMATION
  Report Type: 
  Country: None (occurrence: None)
  Receive Date: 20090402
  Receipt Date: 20090318
  Transmission Date: 20091009
  Serious: Yes (Hospitalization)
  Sender: FDA-Public Use
  Company Number: 2009S1005030

PATIENT
  Age: 82 Year
  Sex: Male
  Weight: 68.0396 kg

DRUGS (2)
  1. IPRATROPIUM BROMIDE AND ALBUTEROL SULFATE [Suspect]
     Indication: DYSPNOEA
     Dosage: 2.5 MG; EVERY 4 HOURS; INHALATION; 0.5 MG;EVERY 4 HOURS; INHALATION
     Route: 055
     Dates: start: 20090201
  2. IPRATROPIUM BROMIDE AND ALBUTEROL SULFATE [Suspect]
     Indication: DYSPNOEA
     Dosage: 2.5 MG; EVERY 4 HOURS; INHALATION; 0.5 MG;EVERY 4 HOURS; INHALATION
     Route: 055
     Dates: start: 20090201

REACTIONS (3)
  - DRUG INEFFECTIVE [None]
  - DYSPNOEA [None]
  - PRODUCT QUALITY ISSUE [None]
